FAERS Safety Report 6406773-0 (Version None)
Quarter: 2009Q4

REPORT INFORMATION
  Report Type: 
  Country: None (occurrence: None)
  Receive Date: 20091020
  Receipt Date: 20091007
  Transmission Date: 20100525
  Serious: Yes (Other)
  Sender: FDA-Public Use
  Company Number: US-PFIZER INC-2009280618

PATIENT
  Sex: Male
  Weight: 112.47 kg

DRUGS (3)
  1. DILANTIN-125 [Suspect]
     Indication: EPILEPSY
     Dosage: 100 MG, 3X/DAY
  2. MONOPRIL [Concomitant]
  3. DOXAZOSIN [Concomitant]

REACTIONS (4)
  - ARTHRALGIA [None]
  - HALLUCINATION [None]
  - NEUROPATHY PERIPHERAL [None]
  - PAIN IN EXTREMITY [None]
